FAERS Safety Report 19030180 (Version 2)
Quarter: 2021Q2

REPORT INFORMATION
  Report Type: Report from Study
  Country: NL (occurrence: NL)
  Receive Date: 20210319
  Receipt Date: 20210407
  Transmission Date: 20210717
  Serious: Yes (Other)
  Sender: FDA-Public Use
  Company Number: NL-SUN PHARMACEUTICAL INDUSTRIES LTD-2021RR-286208

PATIENT
  Sex: Female
  Weight: 100 kg

DRUGS (9)
  1. VASERETIC [Concomitant]
     Active Substance: ENALAPRIL MALEATE\HYDROCHLOROTHIAZIDE
     Indication: PRODUCT USED FOR UNKNOWN INDICATION
     Dosage: 1 DOSAGE FORM, DAILY
     Route: 048
     Dates: start: 20190228, end: 20210221
  2. MICROGYNON [Concomitant]
     Active Substance: ETHINYL ESTRADIOL\LEVONORGESTREL ACETATE
     Indication: CONTRACEPTION
     Dosage: 1 DOSAGE FORM, DAILY
     Route: 048
     Dates: start: 20160415
  3. ILUMETRI 100 MG, OPLOSSING VOOR INJECTIE [Suspect]
     Active Substance: TILDRAKIZUMAB
     Dosage: 1.1111 MG (100 MG,1 IN 3 M)
     Route: 058
     Dates: start: 20201124, end: 20201124
  4. METOPROLOL. [Concomitant]
     Active Substance: METOPROLOL
     Indication: HYPERTENSION
     Dosage: 1 DOSAGE FORM, DAILY
     Route: 048
     Dates: start: 20191028
  5. OMEPRAZOL [Concomitant]
     Active Substance: OMEPRAZOLE
     Indication: DYSPEPSIA
     Dosage: 1 DOSAGE FORM, DAILY
     Route: 048
     Dates: start: 2003
  6. LOSARTAN. [Concomitant]
     Active Substance: LOSARTAN
     Indication: HYPERTENSION
     Dosage: 1 DOSAGE FORM, DAILY
     Route: 048
     Dates: start: 20210226
  7. ILUMETRI 100 MG, OPLOSSING VOOR INJECTIE [Suspect]
     Active Substance: TILDRAKIZUMAB
     Indication: PRODUCT USED FOR UNKNOWN INDICATION
     Dosage: 1.1111 MG (100 MG,1 IN 3 M)
     Route: 058
     Dates: start: 20200421, end: 20210225
  8. ILUMETRI 100 MG, OPLOSSING VOOR INJECTIE [Suspect]
     Active Substance: TILDRAKIZUMAB
     Dosage: 1.1111 MG (100 MG,1 IN 3 M)
     Route: 058
     Dates: start: 20200909, end: 20200909
  9. IBUPROFEN. [Concomitant]
     Active Substance: IBUPROFEN
     Indication: ARTHRALGIA
     Dosage: 1 DOSAGE FORM, DAILY
     Route: 048
     Dates: start: 20160526

REACTIONS (1)
  - Adenocarcinoma of the cervix [Recovered/Resolved]

NARRATIVE: CASE EVENT DATE: 20210209
